FAERS Safety Report 12435430 (Version 1)
Quarter: 2016Q2

REPORT INFORMATION
  Report Type: Spontaneous
  Country: US (occurrence: US)
  Receive Date: 20160603
  Receipt Date: 20160603
  Transmission Date: 20160815
  Serious: No
  Sender: FDA-Public Use
  Company Number: US-ROCHE-1732849

PATIENT
  Sex: Female

DRUGS (14)
  1. SUMATRIPTAN. [Concomitant]
     Active Substance: SUMATRIPTAN
  2. GABAPENTIN. [Concomitant]
     Active Substance: GABAPENTIN
  3. METHOTREXATE [Concomitant]
     Active Substance: METHOTREXATE
  4. FUROSEMIDE. [Concomitant]
     Active Substance: FUROSEMIDE
  5. MORPHINE SULFATE. [Concomitant]
     Active Substance: MORPHINE SULFATE
     Dosage: SHORT ACTING
     Route: 065
  6. WELLBUTRIN [Concomitant]
     Active Substance: BUPROPION HYDROCHLORIDE
  7. BENTYL [Concomitant]
     Active Substance: DICYCLOMINE HYDROCHLORIDE
  8. ACTEMRA [Suspect]
     Active Substance: TOCILIZUMAB
     Indication: RHEUMATOID ARTHRITIS
     Route: 058
  9. FENTANYL. [Concomitant]
     Active Substance: FENTANYL
  10. METHOTREXATE [Concomitant]
     Active Substance: METHOTREXATE
  11. TOPAMAX [Concomitant]
     Active Substance: TOPIRAMATE
     Indication: MIGRAINE
  12. CLONAZEPAM. [Suspect]
     Active Substance: CLONAZEPAM
     Indication: MIGRAINE
     Dosage: TAKES 2 TABLETS AT BEDTIME AND AS NEEDED
     Route: 065
  13. ZOFRAN [Concomitant]
     Active Substance: ONDANSETRON HYDROCHLORIDE
  14. FOLIC ACID. [Concomitant]
     Active Substance: FOLIC ACID

REACTIONS (3)
  - Decreased appetite [Unknown]
  - Irritability [Unknown]
  - Headache [Unknown]
